FAERS Safety Report 9149282 (Version 1)
Quarter: 2013Q1

REPORT INFORMATION
  Report Type: Spontaneous
  Country: US (occurrence: US)
  Receive Date: 20130308
  Receipt Date: 20130308
  Transmission Date: 20140127
  Serious: No
  Sender: FDA-Public Use
  Company Number: US-PFIZER INC-2013078337

PATIENT
  Age: 80 Year
  Sex: Male
  Weight: 89.8 kg

DRUGS (6)
  1. NORVASC [Suspect]
     Indication: HYPERTENSION
     Dosage: 10 MG, 1X/DAY
     Route: 048
     Dates: start: 201301, end: 201302
  2. NORVASC [Suspect]
     Dosage: 5 MG CUTTING 10MG TABLET TO TAKE A DOSE OF 5MG), 1X/DAY
     Route: 048
     Dates: start: 201302
  3. LIPITOR [Concomitant]
     Dosage: UNK
  4. MOTRIN [Concomitant]
     Dosage: UNK
  5. FLOMAX [Concomitant]
     Dosage: UNK
  6. ASPIRIN [Concomitant]
     Dosage: UNK

REACTIONS (1)
  - Local swelling [Unknown]
